FAERS Safety Report 7624911-9 (Version None)
Quarter: 2011Q3

REPORT INFORMATION
  Report Type: 
  Country: None (occurrence: None)
  Receive Date: 20110720
  Receipt Date: 20110711
  Transmission Date: 20111222
  Serious: Yes (Other)
  Sender: FDA-Public Use
  Company Number: FR-ASTRAZENECA-2011SE41669

PATIENT
  Age: 57 Year
  Sex: Female

DRUGS (3)
  1. DIPRIVAN [Suspect]
     Indication: ANAESTHESIA
     Route: 042
     Dates: start: 20100823, end: 20100823
  2. XYLOCAINE [Suspect]
     Indication: ANAESTHESIA
     Route: 065
     Dates: start: 20100823, end: 20100823
  3. SUFENTA PRESERVATIVE FREE [Suspect]
     Indication: ANAESTHESIA

REACTIONS (3)
  - COUGH [None]
  - CYANOSIS [None]
  - URINARY INCONTINENCE [None]
